FAERS Safety Report 5097530-9 (Version None)
Quarter: 2006Q3

REPORT INFORMATION
  Report Type: 
  Country: None (occurrence: None)
  Receive Date: 20060901
  Receipt Date: 20060825
  Transmission Date: 20061208
  Serious: Yes (Life-Threatening)
  Sender: FDA-Public Use
  Company Number: 2006P1000420

PATIENT
  Age: 85 Year
  Sex: Male
  Weight: 64 kg

DRUGS (6)
  1. RETEPLASE (RETEPLASE) [Suspect]
     Indication: ACUTE MYOCARDIAL INFARCTION
     Dosage: IV
     Route: 042
     Dates: start: 20060820, end: 20060820
  2. REOPRO [Suspect]
     Indication: ACUTE MYOCARDIAL INFARCTION
     Dosage: IV
     Route: 042
     Dates: start: 20060820, end: 20060820
  3. ASPIRIN [Concomitant]
  4. CLOPIDOGREL [Concomitant]
  5. SIMVASTATIN [Concomitant]
  6. LANSOPRAZOLE [Concomitant]

REACTIONS (2)
  - HAEMATEMESIS [None]
  - HAEMOGLOBIN DECREASED [None]
